FAERS Safety Report 5016043-3 (Version None)
Quarter: 2006Q2

REPORT INFORMATION
  Report Type: 
  Country: None (occurrence: None)
  Receive Date: 20060531
  Receipt Date: 20060531
  Transmission Date: 20061013
  Serious: Yes (Other)
  Sender: FDA-Public Use
  Company Number: None

PATIENT
  Age: 15 Year
  Sex: Female
  Weight: 56.4 kg

DRUGS (3)
  1. METHOTREXATE [Suspect]
     Indication: JUVENILE ARTHRITIS
     Dosage: 15 MG  WEEKLY  SQ  4.5 YEARS
     Route: 058
     Dates: start: 20011111, end: 20060327
  2. METHOTREXATE [Suspect]
     Indication: RHEUMATOID FACTOR POSITIVE
     Dosage: 15 MG  WEEKLY  SQ  4.5 YEARS
     Route: 058
     Dates: start: 20011111, end: 20060327
  3. ETANERCEPT  AMGEN [Suspect]
     Dosage: 22.5 MG TWICE WEEKLY SQ  3.6 YEARS
     Route: 058
     Dates: start: 20020717, end: 20060327

REACTIONS (1)
  - HODGKIN'S DISEASE [None]
